FAERS Safety Report 12366674 (Version 15)
Quarter: 2018Q2

REPORT INFORMATION
  Report Type: Spontaneous
  Country: CA (occurrence: CA)
  Receive Date: 20160513
  Receipt Date: 20180601
  Transmission Date: 20180711
  Serious: Yes (Hospitalization, Other)
  Sender: FDA-Public Use
  Company Number: CA-PFIZER INC-2016181571

PATIENT
  Age: 58 Year
  Sex: Female

DRUGS (10)
  1. XELJANZ [Suspect]
     Active Substance: TOFACITINIB CITRATE
     Dosage: UNK
     Dates: start: 20180125
  2. PREDNISONE. [Concomitant]
     Active Substance: PREDNISONE
     Indication: RHEUMATOID ARTHRITIS
     Dosage: 3 MG, Q DAILY(1X/DAY) AND IS SLOWLY TAPERING
  3. AMITRIPTYLINE [Concomitant]
     Active Substance: AMITRIPTYLINE
     Dosage: 2X/DAY (25 MG AM, 50 MG PM)
     Route: 048
  4. HYDROMORPH CONTIN [Concomitant]
     Active Substance: HYDROMORPHONE
     Indication: PAIN
     Dosage: 18 MG, 1X/DAY
     Route: 048
     Dates: start: 201604
  5. VITAMIN B12 [Concomitant]
     Active Substance: CYANOCOBALAMIN
     Dosage: 1 DF, 2X/MONTH
     Dates: start: 2016
  6. METHOTREXATE SODIUM. [Suspect]
     Active Substance: METHOTREXATE SODIUM
     Indication: RHEUMATOID ARTHRITIS
     Dosage: 5 MG (2 X 2.5 MG), WEEKLY
     Route: 048
  7. XELJANZ [Suspect]
     Active Substance: TOFACITINIB CITRATE
     Indication: RHEUMATOID ARTHRITIS
     Dosage: 5 MG, 2X/DAY
     Route: 048
     Dates: start: 20160218, end: 20160426
  8. CLONAZEPAM. [Concomitant]
     Active Substance: CLONAZEPAM
     Dosage: 0.5 MG, DAILY
     Route: 048
  9. CIPRALEX [Concomitant]
     Active Substance: ESCITALOPRAM OXALATE
     Dosage: UNK
     Route: 065
  10. PREDNISONE. [Concomitant]
     Active Substance: PREDNISONE
     Dosage: 2 MG, DAILY
     Route: 065

REACTIONS (17)
  - Nail disorder [Not Recovered/Not Resolved]
  - Pain in extremity [Not Recovered/Not Resolved]
  - Drug ineffective [Unknown]
  - Viral infection [Recovered/Resolved]
  - Aphonia [Not Recovered/Not Resolved]
  - Arthralgia [Unknown]
  - Post procedural infection [Recovered/Resolved]
  - Hip fracture [Unknown]
  - Rash [Not Recovered/Not Resolved]
  - Condition aggravated [Recovering/Resolving]
  - Fungal infection [Recovered/Resolved]
  - Blood creatine abnormal [Not Recovered/Not Resolved]
  - Wound secretion [Recovered/Resolved]
  - Weight bearing difficulty [Unknown]
  - Gait disturbance [Not Recovered/Not Resolved]
  - Nasopharyngitis [Recovered/Resolved]
  - Renal disorder [Not Recovered/Not Resolved]

NARRATIVE: CASE EVENT DATE: 20160322
